FAERS Safety Report 4716021-5 (Version None)
Quarter: 2005Q3

REPORT INFORMATION
  Report Type: 
  Country: None (occurrence: None)
  Receive Date: 20050718
  Receipt Date: 20050624
  Transmission Date: 20060218
  Serious: Yes (Hospitalization)
  Sender: FDA-Public Use
  Company Number: DE-GLAXOSMITHKLINE-D0046923A

PATIENT
  Age: 22 Year
  Sex: Female

DRUGS (4)
  1. LAMICTAL [Suspect]
     Indication: EPILEPSY
     Dosage: 200MG TWICE PER DAY
     Route: 048
     Dates: start: 20000101, end: 20050101
  2. VIANI FORTE [Suspect]
     Route: 055
  3. SOLOSIN [Suspect]
     Route: 065
  4. BRONCHOSPRAY [Suspect]
     Route: 055

REACTIONS (6)
  - ASTHMA [None]
  - DYSPNOEA [None]
  - INCREASED VISCOSITY OF BRONCHIAL SECRETION [None]
  - PRODUCTIVE COUGH [None]
  - RESTLESSNESS [None]
  - TREMOR [None]
